FAERS Safety Report 13413949 (Version 1)
Quarter: 2017Q2

REPORT INFORMATION
  Report Type: Other
  Country: DE (occurrence: DE)
  Receive Date: 20170407
  Receipt Date: 20170407
  Transmission Date: 20170830
  Serious: Yes (Disabling, Other)
  Sender: FDA-Public Use
  Company Number: DE-ASTELLAS-2017US013042

PATIENT
  Age: 62 Year
  Sex: Male

DRUGS (8)
  1. BISOPROLOL [Concomitant]
     Active Substance: BISOPROLOL
     Indication: ATRIAL FIBRILLATION
     Dosage: 5 MG (1/2-0-1/2), TWICE DAILY (INTAKE SINCE YEAR)
     Route: 048
  2. TACROLIMUS. [Suspect]
     Active Substance: TACROLIMUS
     Indication: RENAL TRANSPLANT
     Dosage: UNK (ACCORDING TO LEVEL), UNKNOWN FREQ.
     Route: 048
     Dates: start: 20160818
  3. PREDNISOLON                        /00016201/ [Concomitant]
     Active Substance: PREDNISOLONE
     Indication: RENAL TRANSPLANT
     Route: 048
     Dates: start: 20160818
  4. THYRONAJOD [Concomitant]
     Active Substance: LEVOTHYROXINE SODIUM\POTASSIUM IODIDE
     Indication: HYPOTHYROIDISM
     Dosage: 100 ?G, ONCE DAILY (INTAKE SINCE YEAR)
     Route: 048
  5. MYFORTIC [Concomitant]
     Active Substance: MYCOPHENOLATE SODIUM
     Indication: RENAL TRANSPLANT
     Route: 048
     Dates: start: 20160818
  6. PANTOPRAZOL [Concomitant]
     Active Substance: PANTOPRAZOLE SODIUM
     Indication: REFLUX GASTRITIS
     Route: 048
     Dates: start: 20160818
  7. ASPIRIN. [Concomitant]
     Active Substance: ASPIRIN
     Indication: CORONARY ARTERY DISEASE
     Dosage: 100 MG, ONCE DAILY (INTAKE SINCE YEAR)
     Route: 048
  8. MADOPAR [Concomitant]
     Active Substance: BENSERAZIDE HYDROCHLORIDE\LEVODOPA
     Indication: RESTLESS LEGS SYNDROME
     Dosage: 62.5 MG, ONCE DAILY (INTAKE SINCE YEAR)
     Route: 048

REACTIONS (5)
  - Bone marrow oedema [Not Recovered/Not Resolved]
  - Walking disability [Not Recovered/Not Resolved]
  - Pain [Not Recovered/Not Resolved]
  - Wheelchair user [Not Recovered/Not Resolved]
  - Stress fracture [Unknown]

NARRATIVE: CASE EVENT DATE: 20160820
